FAERS Safety Report 8371944-3 (Version None)
Quarter: 2012Q2

REPORT INFORMATION
  Report Type: 
  Country: None (occurrence: None)
  Receive Date: 20120518
  Receipt Date: 20120516
  Transmission Date: 20120825
  Serious: Yes (Hospitalization, Disabling)
  Sender: FDA-Public Use
  Company Number: US-MERCK-1111USA01290

PATIENT
  Age: 61 Year
  Sex: Female

DRUGS (7)
  1. FOSAMAX [Suspect]
     Route: 048
     Dates: start: 20021101, end: 20070601
  2. FOSAMAX [Suspect]
     Indication: OSTEOPOROSIS PROPHYLAXIS
     Route: 048
     Dates: start: 20001001, end: 20021101
  3. HORMONES (UNSPECIFIED) [Concomitant]
     Route: 048
     Dates: start: 19970101, end: 20020101
  4. FOSAMAX PLUS D [Suspect]
     Indication: OSTEOPOROSIS
     Route: 048
     Dates: start: 20070601, end: 20090401
  5. CALCIUM (UNSPECIFIED) [Concomitant]
     Route: 048
     Dates: start: 19970101
  6. FOSAMAX [Suspect]
     Route: 048
     Dates: start: 20021101, end: 20070601
  7. FOSAMAX [Suspect]
     Indication: OSTEOPOROSIS
     Route: 048
     Dates: start: 20001001, end: 20021101

REACTIONS (9)
  - CERVICAL CORD COMPRESSION [None]
  - CALCIUM DEFICIENCY [None]
  - VITAMIN D DEFICIENCY [None]
  - GINGIVAL DISORDER [None]
  - BLOOD CHOLESTEROL INCREASED [None]
  - DRY EYE [None]
  - FEMUR FRACTURE [None]
  - SKIN GRAFT [None]
  - LOW TURNOVER OSTEOPATHY [None]
